FAERS Safety Report 6263968-7 (Version None)
Quarter: 2009Q3

REPORT INFORMATION
  Report Type: 
  Country: None (occurrence: None)
  Receive Date: 20090710
  Receipt Date: 20090703
  Transmission Date: 20100115
  Serious: Yes (Death)
  Sender: FDA-Public Use
  Company Number: DE-AVENTIS-200911707DE

PATIENT
  Age: 65 Year
  Sex: Male
  Weight: 87 kg

DRUGS (1)
  1. PENTOXYPHYLLIN [Suspect]
     Indication: SUDDEN HEARING LOSS
     Dosage: DOSE: NOT REPORTED
     Route: 042
     Dates: start: 20090514, end: 20090524

REACTIONS (1)
  - IDIOPATHIC THROMBOCYTOPENIC PURPURA [None]
